FAERS Safety Report 12407766 (Version 3)
Quarter: 2016Q2

REPORT INFORMATION
  Report Type: Spontaneous
  Country: CN (occurrence: CN)
  Receive Date: 20160526
  Receipt Date: 20160615
  Transmission Date: 20160815
  Serious: Yes (Hospitalization, Other)
  Sender: FDA-Public Use
  Company Number: CN-GLAXOSMITHKLINE-CN2016GSK073768

PATIENT
  Age: 44 Year
  Sex: Male
  Weight: 60 kg

DRUGS (2)
  1. HEPTODIN [Suspect]
     Active Substance: LAMIVUDINE
     Dosage: 1 DF, QD
     Route: 048
  2. HEPTODIN [Suspect]
     Active Substance: LAMIVUDINE
     Indication: HEPATITIS B
     Dosage: 100 MG, QD
     Route: 048
     Dates: start: 201307, end: 201407

REACTIONS (4)
  - Haemangioma of liver [Not Recovered/Not Resolved]
  - Inappropriate schedule of drug administration [Unknown]
  - Hepatitis B [Recovered/Resolved]
  - Gallbladder polyp [Not Recovered/Not Resolved]

NARRATIVE: CASE EVENT DATE: 201407
